FAERS Safety Report 9339064 (Version 1)
Quarter: 2013Q2

REPORT INFORMATION
  Report Type: Spontaneous
  Country: US (occurrence: None)
  Receive Date: 20130606
  Receipt Date: 20130606
  Transmission Date: 20140414
  Serious: Yes (Hospitalization)
  Sender: FDA-Public Use
  Company Number: None

PATIENT
  Age: 55 Year
  Sex: Female
  Weight: 100 kg

DRUGS (1)
  1. COPAXONE [Suspect]
     Indication: MULTIPLE SCLEROSIS
     Route: 058
     Dates: start: 2011

REACTIONS (6)
  - Renal failure [None]
  - Pulmonary oedema [None]
  - Cardiac failure congestive [None]
  - Local swelling [None]
  - Local swelling [None]
  - Dyspnoea [None]
